FAERS Safety Report 7016440-0 (Version None)
Quarter: 2010Q3

REPORT INFORMATION
  Report Type: 
  Country: None (occurrence: None)
  Receive Date: 20100909
  Receipt Date: 20100511
  Transmission Date: 20110219
  Serious: Yes (Other)
  Sender: FDA-Public Use
  Company Number: 2010SP026670

PATIENT
  Age: 24 Year
  Sex: Male

DRUGS (3)
  1. SAPHRIS [Suspect]
     Indication: BIPOLAR DISORDER
     Dosage: 5 MG;HS;SL
     Route: 060
  2. LAMICTAL (CON.) [Concomitant]
  3. PROZAC (CON.) [Concomitant]

REACTIONS (3)
  - ANXIETY [None]
  - DYSTONIA [None]
  - MUSCLE TIGHTNESS [None]
